FAERS Safety Report 20835133 (Version 1)
Quarter: 2022Q2

REPORT INFORMATION
  Report Type: Spontaneous
  Country: US (occurrence: None)
  Receive Date: 20220516
  Receipt Date: 20220516
  Transmission Date: 20220721
  Serious: Yes (Hospitalization)
  Sender: FDA-Public Use
  Company Number: None

PATIENT
  Age: 10 Year
  Sex: Male
  Weight: 57 kg

DRUGS (4)
  1. METHYLPHENIDATE [Suspect]
     Active Substance: METHYLPHENIDATE
     Indication: Attention deficit hyperactivity disorder
     Dosage: FREQUENCY : DAILY;?
     Route: 048
     Dates: start: 20220418, end: 20220428
  2. CLONIDINE [Concomitant]
     Active Substance: CLONIDINE
     Dates: start: 20211111
  3. dexmethylphenidate ER 25 mg [Concomitant]
     Dates: start: 20210720
  4. PREDNISONE [Concomitant]
     Active Substance: PREDNISONE
     Dates: start: 20220427

REACTIONS (1)
  - Stevens-Johnson syndrome [None]

NARRATIVE: CASE EVENT DATE: 20220429
